FAERS Safety Report 5991411-1 (Version None)
Quarter: 2008Q4

REPORT INFORMATION
  Report Type: 
  Country: None (occurrence: None)
  Receive Date: 20081211
  Receipt Date: 20081203
  Transmission Date: 20090506
  Serious: Yes (Hospitalization, Other)
  Sender: FDA-Public Use
  Company Number: IT-ROCHE-600989

PATIENT
  Sex: Male
  Weight: 77 kg

DRUGS (7)
  1. CAPECITABINE [Suspect]
     Indication: COLORECTAL CANCER
     Dosage: FREQUENCY: D14 DATE OF LAST DOSE PRIOR TO SAE: 15 OCTOBER 2008
     Route: 048
     Dates: start: 20080728
  2. BEVACIZUMAB [Suspect]
     Indication: COLORECTAL CANCER
     Dosage: FREQUENCY: D21 FORM: VIALS DATE OF LAST DOSE PRIOR TO SAE 30 SEPTEMBER 2008
     Route: 042
     Dates: start: 20080728
  3. FLUOROURACIL [Concomitant]
     Dosage: BOLUS
     Dates: start: 20081020, end: 20081118
  4. FLUOROURACIL [Concomitant]
     Dosage: IC
     Dates: start: 20081020, end: 20081118
  5. ONDANSETRON [Concomitant]
     Dates: start: 20081203, end: 20081203
  6. OXALIPLATIN [Concomitant]
     Dates: start: 20081020, end: 20081118
  7. FOLINIC ACID [Concomitant]
     Dates: start: 20081020, end: 20081118

REACTIONS (2)
  - CEREBRAL ISCHAEMIA [None]
  - DISEASE PROGRESSION [None]
